FAERS Safety Report 8321600-2 (Version None)
Quarter: 2012Q2

REPORT INFORMATION
  Report Type: 
  Country: None (occurrence: None)
  Receive Date: 20120430
  Receipt Date: 20120416
  Transmission Date: 20120825
  Serious: Yes (Other)
  Sender: FDA-Public Use
  Company Number: KR-TEVA-334403ISR

PATIENT
  Sex: Male

DRUGS (6)
  1. METHOTREXATE [Suspect]
     Indication: RHEUMATOID ARTHRITIS
     Dates: start: 20060125
  2. ABATACEPT [Suspect]
     Indication: RHEUMATOID ARTHRITIS
     Route: 042
     Dates: start: 20070801, end: 20110607
  3. FOLIC ACID [Concomitant]
     Dates: start: 20110125
  4. PREDNISOLONE [Concomitant]
     Dates: start: 20060125
  5. CELECOXIB [Concomitant]
     Dates: start: 20060125
  6. CIMETIDINE [Concomitant]
     Dates: start: 20110125

REACTIONS (1)
  - LYMPH NODE TUBERCULOSIS [None]
